FAERS Safety Report 8072829-2 (Version None)
Quarter: 2012Q1

REPORT INFORMATION
  Report Type: 
  Country: None (occurrence: None)
  Receive Date: 20120126
  Receipt Date: 20120118
  Transmission Date: 20120608
  Serious: Yes (Hospitalization)
  Sender: FDA-Public Use
  Company Number: US-ABBOTT-11P-163-0865335-00

PATIENT
  Sex: Female
  Weight: 32.8 kg

DRUGS (16)
  1. FLONASE [Concomitant]
     Indication: PRODUCT USED FOR UNKNOWN INDICATION
  2. LANTUS [Concomitant]
     Indication: PRODUCT USED FOR UNKNOWN INDICATION
     Route: 058
  3. AMITRIPTYLINE HCL [Concomitant]
     Indication: PRODUCT USED FOR UNKNOWN INDICATION
     Route: 048
  4. FLOVENT [Concomitant]
     Indication: PRODUCT USED FOR UNKNOWN INDICATION
     Route: 055
  5. KIDS VITAMIN D [Concomitant]
     Indication: PRODUCT USED FOR UNKNOWN INDICATION
     Route: 048
  6. XOPENEX [Concomitant]
     Indication: PRODUCT USED FOR UNKNOWN INDICATION
     Dosage: ONCE EVERY 4 HOURS AS REQUIRED
     Route: 055
  7. AZITHROMYCIN [Concomitant]
     Indication: PRODUCT USED FOR UNKNOWN INDICATION
     Dosage: MONDAY, WEDNESDAY, AND FRIDAY
     Route: 048
  8. PULMOZYME [Concomitant]
     Indication: PRODUCT USED FOR UNKNOWN INDICATION
     Route: 055
  9. TOBRAMYCIN [Concomitant]
     Indication: PRODUCT USED FOR UNKNOWN INDICATION
     Route: 055
  10. CREON [Suspect]
     Indication: PANCREATIC INSUFFICIENCY
     Dosage: 5/MEAL AND 2-3/SNACK
     Dates: start: 20100128, end: 20111013
  11. XOPENEX HFA [Concomitant]
     Indication: PRODUCT USED FOR UNKNOWN INDICATION
  12. CREON [Concomitant]
     Indication: PRODUCT USED FOR UNKNOWN INDICATION
     Dosage: 5-6 TABLETS FOUR TIMES A DAY
     Route: 048
  13. VITAMIN K TAB [Concomitant]
     Indication: PRODUCT USED FOR UNKNOWN INDICATION
  14. PREVACID [Concomitant]
     Indication: PRODUCT USED FOR UNKNOWN INDICATION
     Route: 048
  15. SODIUM CHLORIDE [Concomitant]
     Indication: PRODUCT USED FOR UNKNOWN INDICATION
     Route: 055
  16. MULTI-VITAMINS [Concomitant]
     Indication: PRODUCT USED FOR UNKNOWN INDICATION
     Route: 048

REACTIONS (17)
  - DECREASED APPETITE [None]
  - MIGRAINE [None]
  - ABDOMINAL PAIN [None]
  - DISTAL INTESTINAL OBSTRUCTION SYNDROME [None]
  - MALNUTRITION [None]
  - PYREXIA [None]
  - PANCREATIC INSUFFICIENCY [None]
  - FAECALOMA [None]
  - INFECTIVE PULMONARY EXACERBATION OF CYSTIC FIBROSIS [None]
  - SMALL INTESTINAL OBSTRUCTION [None]
  - DEHYDRATION [None]
  - RHINITIS ALLERGIC [None]
  - CONSTIPATION [None]
  - OBSTRUCTIVE AIRWAYS DISORDER [None]
  - ASTHMA [None]
  - DIABETES MELLITUS [None]
  - PSEUDOMONAS INFECTION [None]
